FAERS Safety Report 6542052-9 (Version None)
Quarter: 2010Q1

REPORT INFORMATION
  Report Type: 
  Country: None (occurrence: None)
  Receive Date: 20100119
  Receipt Date: 20100112
  Transmission Date: 20100710
  Serious: Yes (Hospitalization)
  Sender: FDA-Public Use
  Company Number: JP-JNJFOC-20100104024

PATIENT
  Sex: Female
  Weight: 55 kg

DRUGS (16)
  1. DOXORUBICIN HCL [Suspect]
     Indication: OVARIAN CANCER RECURRENT
     Dosage: CYCLE 5
     Route: 042
     Dates: start: 20090512, end: 20091028
  2. DOXORUBICIN HCL [Suspect]
     Dosage: CYCLE 6
     Route: 042
     Dates: start: 20090512, end: 20091028
  3. DOXORUBICIN HCL [Suspect]
     Dosage: CYCLE 4
     Route: 042
     Dates: start: 20090512, end: 20091028
  4. DOXORUBICIN HCL [Suspect]
     Dosage: CYCLE 3
     Route: 042
     Dates: start: 20090512, end: 20091028
  5. DOXORUBICIN HCL [Suspect]
     Dosage: CYCLE 2
     Route: 042
     Dates: start: 20090512, end: 20091028
  6. DOXORUBICIN HCL [Suspect]
     Dosage: CYCLE 1
     Route: 042
     Dates: start: 20090512, end: 20091028
  7. KENALOG [Concomitant]
     Indication: STOMATITIS
     Route: 049
  8. LOXONIN [Concomitant]
     Route: 048
  9. MUCOSTA [Concomitant]
     Indication: PROPHYLAXIS
     Route: 048
  10. NASEA-OD [Concomitant]
     Indication: PROPHYLAXIS
     Route: 048
  11. PYDOXAL [Concomitant]
     Indication: PROPHYLAXIS
     Route: 048
  12. METHYCOBAL [Concomitant]
     Indication: PROPHYLAXIS
     Route: 048
  13. HACHIAZULE [Concomitant]
     Indication: PROPHYLAXIS
     Route: 049
  14. BIOFERMIN [Concomitant]
     Indication: PROPHYLAXIS
     Route: 048
  15. GARASONE [Concomitant]
     Indication: INJECTION SITE HAEMATOMA
     Route: 061
  16. TAKEPRON [Concomitant]
     Indication: PROPHYLAXIS
     Route: 048

REACTIONS (2)
  - ANAEMIA [None]
  - MALAISE [None]
